FAERS Safety Report 24362221 (Version 2)
Quarter: 2024Q4

REPORT INFORMATION
  Report Type: Spontaneous
  Country: US (occurrence: US)
  Receive Date: 20240925
  Receipt Date: 20241030
  Transmission Date: 20250115
  Serious: Yes (Hospitalization, Other)
  Sender: ELI LILLY AND COMPANY
  Company Number: US-ELI_LILLY_AND_COMPANY-US202409009149

PATIENT
  Age: 59 Year
  Sex: Female

DRUGS (2)
  1. HUMULIN R [Suspect]
     Active Substance: INSULIN HUMAN
     Indication: Diabetes mellitus
     Dosage: UNK UNK, UNKNOWN
     Route: 065
  2. GLUCAGON [Suspect]
     Active Substance: GLUCAGON
     Indication: Blood glucose decreased
     Dosage: UNK UNK, UNKNOWN
     Route: 065

REACTIONS (4)
  - Blood glucose decreased [Recovered/Resolved]
  - Blood glucose decreased [Recovered/Resolved]
  - Wrong technique in product usage process [Unknown]
  - Drug ineffective [Unknown]
